FAERS Safety Report 15341472 (Version 14)
Quarter: 2020Q4

REPORT INFORMATION
  Report Type: Spontaneous
  Country: JP (occurrence: JP)
  Receive Date: 20180901
  Receipt Date: 20201204
  Transmission Date: 20210113
  Serious: Yes (Hospitalization)
  Sender: FDA-Public Use
  Company Number: JP-ABBVIE-18K-087-2304591-00

PATIENT
  Age: 79 Year
  Sex: Female

DRUGS (6)
  1. DUODOPA [Suspect]
     Active Substance: CARBIDOPA\LEVODOPA
     Dosage: MD: 7 ML CD: 4.4 ML/HR X 16HRS
     Route: 050
     Dates: start: 20180201
  2. DUODOPA [Suspect]
     Active Substance: CARBIDOPA\LEVODOPA
     Dosage: MD: 6.5 ML?CD: 3.5 ML/HR X 16 HRS
     Route: 050
     Dates: start: 20190816
  3. DUODOPA [Suspect]
     Active Substance: CARBIDOPA\LEVODOPA
     Indication: PRODUCT USED FOR UNKNOWN INDICATION
     Dosage: MD: 6.5, CD: 3.6 AND ED: NOT VERY OFTEN, FROM 6:00 TO 21:00
     Route: 050
     Dates: start: 20170626, end: 20180201
  4. ROTIGOTINE [Concomitant]
     Active Substance: ROTIGOTINE
     Indication: PRODUCT USED FOR UNKNOWN INDICATION
     Dates: start: 20170707, end: 20170731
  5. DROXIDOPA [Concomitant]
     Active Substance: DROXIDOPA
     Indication: PARKINSON^S DISEASE
     Route: 048
  6. CARBIDOPA HYDRATE W/LEVODOPA [Concomitant]
     Indication: PRODUCT USED FOR UNKNOWN INDICATION
     Dates: start: 20170710, end: 20180113

REACTIONS (7)
  - Bezoar [Recovering/Resolving]
  - Fall [Recovered/Resolved]
  - Sputum retention [Unknown]
  - Stoma site extravasation [Unknown]
  - Aspiration [Recovered/Resolved]
  - Parkinson^s disease [Unknown]
  - Femoral neck fracture [Recovered/Resolved]

NARRATIVE: CASE EVENT DATE: 20180201
